FAERS Safety Report 5968512-7 (Version None)
Quarter: 2008Q4

REPORT INFORMATION
  Report Type: 
  Country: None (occurrence: None)
  Receive Date: 20081126
  Receipt Date: 20081120
  Transmission Date: 20090506
  Serious: Yes (Death)
  Sender: FDA-Public Use
  Company Number: NG-SANOFI-SYNTHELABO-A01200814765

PATIENT
  Age: 9 Hour
  Sex: Female
  Weight: 3.1 kg

DRUGS (1)
  1. PENTAZOCINE LACTATE [Suspect]
     Indication: GASTROSCHISIS
     Route: 042

REACTIONS (2)
  - NEONATAL RESPIRATORY DEPRESSION [None]
  - RESPIRATORY DEPRESSION [None]
